FAERS Safety Report 10235892 (Version 1)
Quarter: 2014Q2

REPORT INFORMATION
  Report Type: Spontaneous
  Country: US (occurrence: US)
  Receive Date: 20140613
  Receipt Date: 20140613
  Transmission Date: 20141212
  Serious: Yes (Hospitalization)
  Sender: FDA-Public Use
  Company Number: US-B.I. PHARMACEUTICALS,INC./RIDGEFIELD-2014-BI-26465BP

PATIENT
  Age: 59 Year
  Sex: Female
  Weight: 136 kg

DRUGS (5)
  1. PRADAXA [Suspect]
     Indication: ATRIAL FIBRILLATION
     Dosage: 300 MG
     Route: 048
  2. ATENOLOL [Concomitant]
     Indication: HYPERTENSION
     Dosage: 50 MG
     Route: 048
     Dates: start: 2004
  3. LISINOPRIL [Concomitant]
     Indication: HYPERTENSION
     Dosage: STRENGTH: 20 MG/12.5 MG; DAILY DOSE: 20 MG/12.5 MG
     Route: 048
     Dates: start: 2004
  4. FLECANIDE [Concomitant]
     Indication: ATRIAL FIBRILLATION
     Dosage: 200 MG
     Route: 048
  5. ASPIRIN [Concomitant]
     Dosage: 81 MG
     Route: 048
     Dates: start: 2004

REACTIONS (2)
  - Arthritis [Recovered/Resolved]
  - Arthritis [Recovered/Resolved]
